FAERS Safety Report 20713354 (Version 1)
Quarter: 2022Q2

REPORT INFORMATION
  Report Type: Spontaneous
  Country: US (occurrence: None)
  Receive Date: 20220414
  Receipt Date: 20220414
  Transmission Date: 20220721
  Serious: Yes (Hospitalization)
  Sender: FDA-Public Use
  Company Number: None

PATIENT
  Sex: Female

DRUGS (2)
  1. SODIUM CHLORIDE [Suspect]
     Active Substance: SODIUM CHLORIDE
     Indication: Bronchiectasis
     Dosage: 1 VIAL 4XDAILY INHALATION
     Route: 055
     Dates: start: 20210628
  2. COLISTIMETHATE SODIUM [Suspect]
     Active Substance: COLISTIMETHATE SODIUM
     Indication: Bronchiectasis
     Dosage: 150MG EVERY 12 HRS INHALATION?
     Route: 055
     Dates: start: 202002

REACTIONS (2)
  - Lung disorder [None]
  - Infection [None]
